FAERS Safety Report 4866269-4 (Version None)
Quarter: 2005Q4

REPORT INFORMATION
  Report Type: 
  Country: None (occurrence: None)
  Receive Date: 20051221
  Receipt Date: 20051208
  Transmission Date: 20060501
  Serious: Yes (Life-Threatening, Hospitalization)
  Sender: FDA-Public Use
  Company Number: US-2005-026452

PATIENT
  Age: 54 Year
  Sex: Male
  Weight: 109 kg

DRUGS (40)
  1. CAMPATH [Suspect]
     Indication: LIVER TRANSPLANT
     Dosage: 30 MG, 1 DOSE, INTRAVENOUS
     Route: 042
     Dates: start: 20050427, end: 20050427
  2. CAMPATH [Suspect]
     Indication: LIVER TRANSPLANT
     Dosage: 30 MG, 1 DOSE, INTRAVENOUS
     Route: 042
     Dates: start: 20050501, end: 20050501
  3. TACROLIMUS (TACROLIMUS) [Suspect]
     Indication: LIVER TRANSPLANT
     Dosage: 4.5 MG, 2X/DAY, ORAL
     Route: 048
     Dates: start: 20050428
  4. BACTRIM DS [Concomitant]
  5. VALCYTE [Concomitant]
  6. CALCIUM CHLORIDE ^BIOTIKA^ (CALCIUM CHLORIDE DIHYDRATE) [Concomitant]
  7. ATIVAN [Concomitant]
  8. UNASYN (SULTAMICILLIN TOSILATE) [Concomitant]
  9. NYSTATIN [Concomitant]
  10. POLY-VI-SOL (VITAMINS NOS) [Concomitant]
  11. ZANTAC [Concomitant]
  12. CHLOROHEX (CHLORHEXIDINE GLUCONATE) [Concomitant]
  13. ALBUTEROL [Concomitant]
  14. LASIX [Concomitant]
  15. NORMAL SALINE [Concomitant]
  16. ALBUMIN (HUMAN) [Concomitant]
  17. INSULIN [Concomitant]
  18. PROPOFOL [Concomitant]
  19. DULCOLAX [Concomitant]
  20. POTASSIUM CHLORIDE [Concomitant]
  21. MUCOMYST /NET/ (ACETYLCYSTEINE SODIUM) [Concomitant]
  22. SOLU-MEDROL [Concomitant]
  23. TYLENOL [Concomitant]
  24. BENADRYL ^ACHE^ (AMMONIUM CHLORIDE, DIPHENHYDRAMINE HYDROCHLORIDE, MEN [Concomitant]
  25. PROTONIX [Concomitant]
  26. CEFEPIME HYDROCHLORIDE (CEFEPIME HYDROCHLORIDE) [Concomitant]
  27. LEVAQUIN [Concomitant]
  28. MORPHINE [Concomitant]
  29. CITRATE ACID [Concomitant]
  30. METOPROLOL SUCCINATE [Concomitant]
  31. BICART (SODIUM BICARBONATE) [Concomitant]
  32. SUCCINYLCHOLINE CHLORIDE [Concomitant]
  33. ETOMIDATE [Concomitant]
  34. REGLAN /USA/ (METOCLOPRAMIDE HYDROCHLORIDE) [Concomitant]
  35. MAGNESIUM (MAGNESIUM) [Concomitant]
  36. DARBEPOETIN ALFA (DARBEPOETIN ALFA) [Concomitant]
  37. ZOSYN (TAZOBACTAM SODIUM, PIPERACILLIN SODIUM) [Concomitant]
  38. GLYBURIDE [Concomitant]
  39. DILAUDID [Concomitant]
  40. DIFLUCAN (FLUCONAZOLE) [Concomitant]

REACTIONS (7)
  - BILIARY TRACT DISORDER [None]
  - HAEMODIALYSIS [None]
  - LUNG INFECTION PSEUDOMONAL [None]
  - PROCEDURAL HYPOTENSION [None]
  - RENAL FAILURE ACUTE [None]
  - RENAL IMPAIRMENT [None]
  - RENAL TUBULAR NECROSIS [None]
